FAERS Safety Report 7029701-6 (Version None)
Quarter: 2010Q4

REPORT INFORMATION
  Report Type: 
  Country: None (occurrence: None)
  Receive Date: 20101005
  Receipt Date: 20101005
  Transmission Date: 20110411
  Serious: Yes (Hospitalization)
  Sender: FDA-Public Use
  Company Number: None

PATIENT
  Sex: Male
  Weight: 104.3 kg

DRUGS (8)
  1. CYCLOPHOSPHAMIDE [Suspect]
     Dosage: 2290 MG
  2. CYTARABINE [Suspect]
     Dosage: 1376 MG
  3. DEXAMETHASONE [Suspect]
     Dosage: 280 MG
  4. DOXORUBICIN HYDROCHLORIDE [Suspect]
     Dosage: 172 MG
  5. METHOTREXATE [Suspect]
     Dosage: 45 MG
  6. PEG-L- ASPARAGINASE (K -H) [Suspect]
     Dosage: 11525 IU
  7. THIOGUANINE [Suspect]
     Dosage: 1440 MG
  8. VINCRISTINE SULFATE [Suspect]
     Dosage: 8 MG

REACTIONS (11)
  - ABDOMINAL PAIN [None]
  - CHEST PAIN [None]
  - DIARRHOEA [None]
  - FEBRILE NEUTROPENIA [None]
  - HAEMOPTYSIS [None]
  - HYPOPHAGIA [None]
  - HYPOTENSION [None]
  - HYPOXIA [None]
  - PNEUMONIA [None]
  - RESPIRATORY DISTRESS [None]
  - SEPSIS [None]
